FAERS Safety Report 10088991 (Version 1)
Quarter: 2014Q2

REPORT INFORMATION
  Report Type: Spontaneous
  Country: US (occurrence: None)
  Receive Date: 20140418
  Receipt Date: 20140418
  Transmission Date: 20141212
  Serious: Yes (Life-Threatening)
  Sender: FDA-Public Use
  Company Number: None

PATIENT
  Sex: Male
  Weight: 87.09 kg

DRUGS (24)
  1. SYNTHROID [Suspect]
     Indication: HYPOTHYROIDISM
     Route: 048
     Dates: start: 20140404, end: 20140405
  2. SEROQUEL [Concomitant]
  3. IMIPRAMINE [Concomitant]
  4. ALPRAZOLAM [Concomitant]
  5. LORATIDINE [Concomitant]
  6. OMEPRAZOLE [Concomitant]
  7. OXYCODONE [Concomitant]
  8. CYCLOBENZAPRINE [Concomitant]
  9. NIFEDIPINE [Concomitant]
  10. METOPROLOL [Concomitant]
  11. DOCUSATE SODIUM [Concomitant]
  12. ETODOLAC [Concomitant]
  13. ASPIRINE [Concomitant]
  14. CARBOXYMETHYLCELLULOSE [Concomitant]
  15. GLUCOSE TEST STRIPS [Concomitant]
  16. TECLITE [Concomitant]
  17. ALCOHOL [Concomitant]
  18. UREA [Concomitant]
  19. GLIPIZIDE [Concomitant]
  20. BAND AIDES [Concomitant]
  21. AIR MASKS [Concomitant]
  22. ZINC OXIDE [Concomitant]
  23. ARTIFICIAL SALIVA [Concomitant]
  24. OXYBUTIN [Concomitant]

REACTIONS (8)
  - Blood pressure increased [None]
  - Vomiting [None]
  - Hyperhidrosis [None]
  - Mental disorder [None]
  - Diarrhoea [None]
  - Headache [None]
  - Dyspnoea [None]
  - Loss of consciousness [None]
